FAERS Safety Report 4568023-X (Version None)
Quarter: 2005Q1

REPORT INFORMATION
  Report Type: 
  Country: None (occurrence: None)
  Receive Date: 20050202
  Receipt Date: 20050119
  Transmission Date: 20050727
  Serious: Yes (Other)
  Sender: FDA-Public Use
  Company Number: 200510235JP

PATIENT
  Age: 62 Year
  Sex: Male

DRUGS (5)
  1. KETEK [Suspect]
     Indication: PERIODONTITIS
     Route: 048
     Dates: start: 20050107, end: 20050107
  2. OMEPRAL [Concomitant]
  3. S.M. POWDER [Concomitant]
  4. CERNILTON [Concomitant]
  5. SERMION [Concomitant]

REACTIONS (3)
  - DECREASED ACTIVITY [None]
  - DEPRESSED LEVEL OF CONSCIOUSNESS [None]
  - PARALYSIS [None]
